FAERS Safety Report 4436444-1 (Version None)
Quarter: 2004Q3

REPORT INFORMATION
  Report Type: 
  Country: None (occurrence: None)
  Receive Date: 20040830
  Receipt Date: 20040512
  Transmission Date: 20050211
  Serious: Yes (Hospitalization)
  Sender: FDA-Public Use
  Company Number: US-BRISTOL-MYERS SQUIBB COMPANY-12587416

PATIENT
  Age: 89 Year
  Sex: Female

DRUGS (8)
  1. ABILIFY [Suspect]
  2. ATIVAN [Concomitant]
  3. WELLBUTRIN [Concomitant]
  4. MULTI-VITAMIN [Concomitant]
  5. VITAMIN E [Concomitant]
  6. REMINYL [Concomitant]
  7. EFFEXOR XR [Concomitant]
  8. SYNTHROID [Concomitant]

REACTIONS (1)
  - PANCREATITIS [None]
